FAERS Safety Report 6982001-2 (Version None)
Quarter: 2010Q3

REPORT INFORMATION
  Report Type: 
  Country: None (occurrence: None)
  Receive Date: 20100914
  Receipt Date: 20091130
  Transmission Date: 20110219
  Serious: No
  Sender: FDA-Public Use
  Company Number: US-PFIZER INC-2009278098

PATIENT
  Sex: Female

DRUGS (4)
  1. LYRICA [Suspect]
     Dosage: UNK
  2. DILAUDID [Concomitant]
     Dosage: 12 MG, UNK
  3. OXYCONTIN [Concomitant]
     Dosage: 160 MG, UNK
  4. CYMBALTA [Concomitant]
     Dosage: UNK

REACTIONS (2)
  - PAIN [None]
  - WEIGHT INCREASED [None]
